FAERS Safety Report 8131439-9 (Version None)
Quarter: 2012Q1

REPORT INFORMATION
  Report Type: 
  Country: None (occurrence: None)
  Receive Date: 20120213
  Receipt Date: 20120203
  Transmission Date: 20120608
  Serious: Yes (Hospitalization, Other)
  Sender: FDA-Public Use
  Company Number: US-BAYER-2011-085335

PATIENT
  Age: 24 Year
  Sex: Female
  Weight: 70.295 kg

DRUGS (8)
  1. YAZ [Suspect]
     Dosage: UNK
     Dates: start: 20090101, end: 20090801
  2. PHENTERMINE [Concomitant]
     Dosage: 37.5 MG, UNK
     Dates: start: 20090605
  3. DROSPIRENONE AND ETHINYL ESTRADIOL [Suspect]
     Indication: OVARIAN CYST
     Dosage: UNK
     Dates: start: 20080701, end: 20081201
  4. CYCLOBENZAPRINE [Concomitant]
     Dosage: 10 MG, UNK
     Dates: start: 20090708
  5. ISOMETH/APAP [Concomitant]
  6. INDERAL LA [Concomitant]
     Indication: MIGRAINE
     Dosage: UNK
     Dates: start: 20081001, end: 20090801
  7. YAZ [Suspect]
     Indication: OVARIAN CYST
     Dosage: UNK
     Dates: start: 20080201, end: 20080401
  8. YASMIN [Suspect]
     Indication: OVARIAN CYST
     Dosage: UNK
     Dates: start: 20080601

REACTIONS (6)
  - EMOTIONAL DISTRESS [None]
  - GALLBLADDER DISORDER [None]
  - CHOLECYSTITIS CHRONIC [None]
  - ANXIETY [None]
  - INJURY [None]
  - PAIN [None]
